FAERS Safety Report 4675925-2 (Version None)
Quarter: 2005Q2

REPORT INFORMATION
  Report Type: 
  Country: None (occurrence: None)
  Receive Date: 20050527
  Receipt Date: 20050308
  Transmission Date: 20051028
  Serious: No
  Sender: FDA-Public Use
  Company Number: US-GLAXOSMITHKLINE-A0549009A

PATIENT
  Age: 17 Year
  Sex: Female

DRUGS (6)
  1. WELLBUTRIN XL [Suspect]
     Indication: DEPRESSION
     Dosage: 150MG PER DAY
     Route: 048
  2. FENTANYL [Suspect]
  3. ANESTHESIA [Suspect]
  4. CONCERTA [Suspect]
  5. ORTHO CYCLEN-28 [Concomitant]
  6. TAPAZOLE [Concomitant]

REACTIONS (1)
  - TREMOR [None]
